FAERS Safety Report 13859576 (Version 2)
Quarter: 2017Q3

REPORT INFORMATION
  Report Type: Spontaneous
  Country: US (occurrence: US)
  Receive Date: 20170811
  Receipt Date: 20170814
  Transmission Date: 20171127
  Serious: No
  Sender: FDA-Public Use
  Company Number: US-PFIZER INC-2017343574

PATIENT
  Age: 56 Year
  Sex: Female

DRUGS (1)
  1. XELJANZ XR [Suspect]
     Active Substance: TOFACITINIB CITRATE
     Dosage: 11 MG, 1X/DAY
     Route: 048
     Dates: start: 20170609, end: 20170808

REACTIONS (10)
  - Paraesthesia [Unknown]
  - Throat tightness [Unknown]
  - Abdominal distension [Unknown]
  - Drug ineffective [Unknown]
  - Nausea [Unknown]
  - Sinusitis [Unknown]
  - Diarrhoea [Unknown]
  - Constipation [Unknown]
  - Stomatitis [Unknown]
  - Oropharyngeal pain [Unknown]
